FAERS Safety Report 25120687 (Version 1)
Quarter: 2025Q1

REPORT INFORMATION
  Report Type: Spontaneous
  Country: US (occurrence: US)
  Receive Date: 20250325
  Receipt Date: 20250325
  Transmission Date: 20250409
  Serious: No
  Sender: ROCHE
  Company Number: US-ROCHE-10000238503

PATIENT
  Age: 58 Year
  Sex: Female

DRUGS (1)
  1. OCREVUS [Suspect]
     Active Substance: OCRELIZUMAB
     Indication: Multiple sclerosis
     Dosage: MOST RECENT DOSE ON  -MAR-2025 AT LESS THAN 50MLS.
     Route: 042
     Dates: start: 202209

REACTIONS (3)
  - Vein collapse [Unknown]
  - Dehydration [Unknown]
  - Underdose [Unknown]

NARRATIVE: CASE EVENT DATE: 20250301
